FAERS Safety Report 5337826-6 (Version None)
Quarter: 2007Q2

REPORT INFORMATION
  Report Type: 
  Country: None (occurrence: None)
  Receive Date: 20070308
  Receipt Date: 20061227
  Transmission Date: 20071010
  Serious: No
  Sender: FDA-Public Use
  Company Number: 2006-BP15156BP

PATIENT
  Age: 84 Year
  Sex: Female

DRUGS (7)
  1. SPIRIVA [Suspect]
     Indication: CHRONIC OBSTRUCTIVE PULMONARY DISEASE
     Dosage: 18 MCG (18 MCG, 1 IN 1 D), IH
     Route: 055
     Dates: start: 20060101, end: 20061228
  2. THEOPHYLLINE [Concomitant]
  3. VITAMIN (VITAMINS) [Concomitant]
  4. ALBUTEROL [Concomitant]
  5. RANITIDINE [Concomitant]
  6. NOSE DROPS (ALL OTHER THERAPEUTIC PRODUCTS) [Concomitant]
  7. EYE DROPS (TETRYZOLINE HYDROCHLORIDE [Concomitant]

REACTIONS (2)
  - EYE DISORDER [None]
  - VISION BLURRED [None]
